FAERS Safety Report 4991198-5 (Version None)
Quarter: 2006Q2

REPORT INFORMATION
  Report Type: 
  Country: None (occurrence: None)
  Receive Date: 20060504
  Receipt Date: 20060303
  Transmission Date: 20061013
  Serious: Yes (Life-Threatening, Hospitalization)
  Sender: FDA-Public Use
  Company Number: IE-ROCHE-438894

PATIENT
  Age: 22 Year
  Sex: Male

DRUGS (1)
  1. ROACCUTANE [Suspect]
     Indication: ACNE
     Route: 048
     Dates: start: 20050615, end: 20051215

REACTIONS (7)
  - BUDD-CHIARI SYNDROME [None]
  - DIALYSIS [None]
  - HEPATIC VEIN THROMBOSIS [None]
  - PAROXYSMAL NOCTURNAL HAEMOGLOBINURIA [None]
  - PORTAL VEIN THROMBOSIS [None]
  - RENAL VEIN THROMBOSIS [None]
  - VENA CAVA THROMBOSIS [None]
